FAERS Safety Report 7719530-X (Version None)
Quarter: 2011Q3

REPORT INFORMATION
  Report Type: 
  Country: None (occurrence: None)
  Receive Date: 20110830
  Receipt Date: 20110816
  Transmission Date: 20111222
  Serious: Yes (Hospitalization, Other)
  Sender: FDA-Public Use
  Company Number: BR-US-EMD SERONO, INC.-7007416

PATIENT
  Sex: Female

DRUGS (7)
  1. REBIF [Suspect]
     Indication: RELAPSING-REMITTING MULTIPLE SCLEROSIS
     Route: 058
     Dates: start: 20080728
  2. ALMEIDA PRADO [Concomitant]
     Indication: CONSTIPATION
  3. MACRODANTIN [Concomitant]
  4. BACTRIN F( SULFAMETOXAZOLE+TRIMETOPRIME) [Concomitant]
  5. REBIF [Suspect]
     Dates: end: 20110101
  6. REBIF [Suspect]
     Dates: start: 20110601
  7. UROVAXON [Concomitant]
     Dates: start: 20110201

REACTIONS (5)
  - CONSTIPATION [None]
  - INFLUENZA [None]
  - MENISCUS OPERATION [None]
  - CHOLELITHIASIS [None]
  - URINARY TRACT INFECTION [None]
